FAERS Safety Report 10862272 (Version 2)
Quarter: 2015Q2

REPORT INFORMATION
  Report Type: Spontaneous
  Country: US (occurrence: US)
  Receive Date: 20150224
  Receipt Date: 20150424
  Transmission Date: 20150821
  Serious: No
  Sender: FDA-Public Use
  Company Number: US-PFIZER INC-2015067585

PATIENT
  Sex: Female

DRUGS (9)
  1. CORTISONE [Suspect]
     Active Substance: CORTISONE\HYDROCORTISONE
     Dosage: UNK
  2. PROCHLORPERAZINE. [Suspect]
     Active Substance: PROCHLORPERAZINE
  3. TRILEPTAL [Suspect]
     Active Substance: OXCARBAZEPINE
  4. PROVIGIL [Suspect]
     Active Substance: MODAFINIL
  5. MORPHINE SULFATE. [Suspect]
     Active Substance: MORPHINE SULFATE
     Dosage: UNK
  6. ROCEPHIN [Suspect]
     Active Substance: CEFTRIAXONE SODIUM
     Dosage: UNK
  7. BLEPH-10 [Suspect]
     Active Substance: SULFACETAMIDE SODIUM
  8. BYETTA [Suspect]
     Active Substance: EXENATIDE
  9. KEPPRA [Suspect]
     Active Substance: LEVETIRACETAM
     Dosage: UNK

REACTIONS (1)
  - Drug hypersensitivity [Unknown]
